FAERS Safety Report 7707248-9 (Version None)
Quarter: 2011Q3

REPORT INFORMATION
  Report Type: 
  Country: None (occurrence: None)
  Receive Date: 20110824
  Receipt Date: 20110812
  Transmission Date: 20111222
  Serious: Yes (Hospitalization, Other)
  Sender: FDA-Public Use
  Company Number: PHHY2011JP70955

PATIENT
  Age: 63 Year
  Sex: Male

DRUGS (1)
  1. IMATINIB MESYLATE [Suspect]
     Indication: GASTROINTESTINAL STROMAL TUMOUR
     Route: 048

REACTIONS (6)
  - TUMOUR RUPTURE [None]
  - ABDOMINAL PAIN [None]
  - ASCITES [None]
  - HYPOPHAGIA [None]
  - INFECTIOUS PERITONITIS [None]
  - PERICARDIAL EFFUSION [None]
